FAERS Safety Report 6202742-4 (Version None)
Quarter: 2009Q2

REPORT INFORMATION
  Report Type: 
  Country: None (occurrence: None)
  Receive Date: 20090526
  Receipt Date: 20090518
  Transmission Date: 20091009
  Serious: Yes (Other)
  Sender: FDA-Public Use
  Company Number: PHEH2009US01399

PATIENT
  Sex: Female

DRUGS (1)
  1. ZOMETA [Suspect]
     Indication: NEOPLASM MALIGNANT

REACTIONS (22)
  - AMNESIA [None]
  - ANHEDONIA [None]
  - ANXIETY [None]
  - ARNOLD-CHIARI MALFORMATION [None]
  - CONJUNCTIVITIS [None]
  - DISCOMFORT [None]
  - DIVERTICULITIS [None]
  - EMOTIONAL DISTRESS [None]
  - HAEMORRHOIDS [None]
  - HEADACHE [None]
  - HYPOACUSIS [None]
  - INJURY [None]
  - INSOMNIA [None]
  - LIFE EXPECTANCY SHORTENED [None]
  - MASTICATION DISORDER [None]
  - NECK PAIN [None]
  - OSTEONECROSIS [None]
  - PAIN [None]
  - PHYSICAL DISABILITY [None]
  - SCAR [None]
  - URINARY TRACT INFECTION [None]
  - VERTIGO [None]
